FAERS Safety Report 7408833-4 (Version None)
Quarter: 2011Q2

REPORT INFORMATION
  Report Type: 
  Country: None (occurrence: None)
  Receive Date: 20110412
  Receipt Date: 20110406
  Transmission Date: 20111010
  Serious: Yes (Other)
  Sender: FDA-Public Use
  Company Number: DE-PFIZER INC-2011076753

PATIENT
  Age: 39 Year
  Sex: Female
  Weight: 60 kg

DRUGS (3)
  1. KEPPRA [Suspect]
     Dosage: 750 MG, 2X/DAY
  2. FEMIGOA [Suspect]
     Indication: CONTRACEPTION
     Dosage: UNK
     Dates: start: 20101201
  3. KEPPRA [Suspect]
     Indication: EPILEPSY
     Dosage: 500 MG, 2X/DAY
     Dates: start: 20040101

REACTIONS (1)
  - EPILEPSY [None]
